FAERS Safety Report 15943007 (Version 1)
Quarter: 2019Q1

REPORT INFORMATION
  Report Type: Spontaneous
  Country: US (occurrence: US)
  Receive Date: 20190117
  Receipt Date: 20190117
  Transmission Date: 20190417
  Serious: Yes (Hospitalization)
  Sender: FDA-Public Use
  Company Number: None

PATIENT
  Age: 68 Year
  Sex: Male
  Weight: 88 kg

DRUGS (1)
  1. SULFAMETHOXAZOLE/TRIMETHOPRIM [Suspect]
     Active Substance: SULFAMETHOXAZOLE\TRIMETHOPRIM
     Indication: URINARY TRACT INFECTION
     Dosage: ?          OTHER DOSE:1 TAB;?
     Route: 048
     Dates: start: 20181020, end: 20181024

REACTIONS (6)
  - Hyperkalaemia [None]
  - Balance disorder [None]
  - Drug hypersensitivity [None]
  - Hypotension [None]
  - Muscular weakness [None]
  - Acute kidney injury [None]

NARRATIVE: CASE EVENT DATE: 20181023
